FAERS Safety Report 12893785 (Version 1)
Quarter: 2016Q4

REPORT INFORMATION
  Report Type: Spontaneous
  Country: US (occurrence: US)
  Receive Date: 20161028
  Receipt Date: 20161028
  Transmission Date: 20170207
  Serious: No
  Sender: FDA-Public Use
  Company Number: US-GLAXOSMITHKLINE-US2016GSK158842

PATIENT
  Sex: Male

DRUGS (4)
  1. NICOTINE TRANSDERMAL PATCH [Suspect]
     Active Substance: NICOTINE
     Dosage: UNK
  2. NICOTINE TRANSDERMAL PATCH [Suspect]
     Active Substance: NICOTINE
     Indication: SMOKING CESSATION THERAPY
  3. NICOTINE TRANSDERMAL PATCH [Suspect]
     Active Substance: NICOTINE
     Indication: SMOKING CESSATION THERAPY
  4. WELLBUTRIN [Suspect]
     Active Substance: BUPROPION HYDROCHLORIDE
     Indication: SMOKING CESSATION THERAPY

REACTIONS (7)
  - Drug ineffective [Unknown]
  - Vertigo [Unknown]
  - Off label use [Recovered/Resolved]
  - Product use issue [Recovered/Resolved]
  - Application site discharge [Unknown]
  - Abnormal dreams [Unknown]
  - Product quality issue [Unknown]

NARRATIVE: CASE EVENT DATE: 20160922
